FAERS Safety Report 6664724-8 (Version None)
Quarter: 2010Q1

REPORT INFORMATION
  Report Type: 
  Country: None (occurrence: None)
  Receive Date: 20100330
  Receipt Date: 20100316
  Transmission Date: 20100710
  Serious: Yes (Death, Hospitalization)
  Sender: FDA-Public Use
  Company Number: 220001N10ESP

PATIENT
  Sex: Male

DRUGS (1)
  1. SAIZEN [Suspect]
     Dosage: SUBCUTANEOUS

REACTIONS (1)
  - NEPHROTIC SYNDROME [None]
